FAERS Safety Report 6479596-4 (Version None)
Quarter: 2009Q4

REPORT INFORMATION
  Report Type: 
  Country: None (occurrence: None)
  Receive Date: 20091208
  Receipt Date: 20091204
  Transmission Date: 20100525
  Serious: Yes (Death)
  Sender: FDA-Public Use
  Company Number: PL-JNJFOC-20091201365

PATIENT
  Age: 70 Year
  Sex: Female
  Weight: 80 kg

DRUGS (5)
  1. RISPOLEPT [Suspect]
     Indication: SCHIZOPHRENIA, PARANOID TYPE
     Route: 048
  2. RISPOLEPT CONSTA [Suspect]
     Indication: SCHIZOPHRENIA, PARANOID TYPE
     Route: 030
     Dates: start: 20091130
  3. DEPAKENE [Suspect]
     Indication: SCHIZOPHRENIA, PARANOID TYPE
     Route: 048
  4. MONONIT [Concomitant]
     Indication: MYOCARDIAL ISCHAEMIA
     Route: 065
  5. ALL OTHER THERAPEUTIC PRODUCTS [Concomitant]
     Indication: MYOCARDIAL ISCHAEMIA
     Route: 065

REACTIONS (1)
  - SUDDEN DEATH [None]
